FAERS Safety Report 23705271 (Version 4)
Quarter: 2024Q4

REPORT INFORMATION
  Report Type: Report from Study
  Country: HU (occurrence: HU)
  Receive Date: 20240404
  Receipt Date: 20241112
  Transmission Date: 20250115
  Serious: Yes (Other)
  Sender: NOVARTIS
  Company Number: HU-002147023-NVSC2024HU070699

PATIENT
  Sex: Female

DRUGS (1)
  1. KISQALI [Suspect]
     Active Substance: RIBOCICLIB
     Indication: Product used for unknown indication
     Dosage: 1 TABLET, QD (1X)
     Route: 065

REACTIONS (4)
  - Renal impairment [Unknown]
  - Hyperkalaemia [Unknown]
  - Anaemia [Unknown]
  - Asthenia [Unknown]
